FAERS Safety Report 6317413-3 (Version None)
Quarter: 2009Q3

REPORT INFORMATION
  Report Type: 
  Country: None (occurrence: None)
  Receive Date: 20090820
  Receipt Date: 20090820
  Transmission Date: 20100115
  Serious: Yes (Hospitalization, Other)
  Sender: FDA-Public Use
  Company Number: None

PATIENT
  Age: 58 Year
  Sex: Male
  Weight: 90.7194 kg

DRUGS (2)
  1. LAMICTAL [Suspect]
     Indication: EPILEPSY
     Dosage: 700 MG/DAY 400 AM/300 PM ORAL
     Route: 048
     Dates: start: 19970101
  2. DILANTIN [Suspect]
     Indication: EPILEPSY
     Dosage: 400 MG/DAY 200 AM/200 PM ORAL BEFORE 1980
     Route: 048

REACTIONS (10)
  - COORDINATION ABNORMAL [None]
  - DIZZINESS [None]
  - DYSARTHRIA [None]
  - DYSPNOEA [None]
  - HEADACHE [None]
  - MENTAL DISORDER [None]
  - MUSCULAR WEAKNESS [None]
  - NASAL CONGESTION [None]
  - PYREXIA [None]
  - SOMNOLENCE [None]
